FAERS Safety Report 10085746 (Version 1)
Quarter: 2014Q2

REPORT INFORMATION
  Report Type: Report from Study
  Country: FR (occurrence: FR)
  Receive Date: 20140418
  Receipt Date: 20140418
  Transmission Date: 20141212
  Serious: Yes (Hospitalization)
  Sender: FDA-Public Use
  Company Number: FR-ROCHE-1385599

PATIENT
  Age: 43 Year
  Sex: Male

DRUGS (1)
  1. XOLAIR [Suspect]
     Indication: ASTHMA
     Route: 065

REACTIONS (6)
  - Asthma [Unknown]
  - Agitation [Unknown]
  - Accident [Unknown]
  - Headache [Unknown]
  - Fatigue [Unknown]
  - Middle insomnia [Unknown]
